FAERS Safety Report 8049050-7 (Version None)
Quarter: 2012Q1

REPORT INFORMATION
  Report Type: 
  Country: None (occurrence: None)
  Receive Date: 20120117
  Receipt Date: 20120113
  Transmission Date: 20120608
  Serious: No
  Sender: FDA-Public Use
  Company Number: US-PFIZER INC-2012010939

PATIENT
  Age: 19 Month
  Sex: Female
  Weight: 11.3 kg

DRUGS (2)
  1. PREMARIN [Suspect]
     Indication: GENITAL LABIAL ADHESIONS
  2. PREMARIN [Suspect]
     Indication: OFF LABEL USE
     Dosage: UNK, 2X/DAY
     Route: 067
     Dates: start: 20120109

REACTIONS (3)
  - VAGINAL DISORDER [None]
  - RASH [None]
  - VAGINAL MUCOSAL BLISTERING [None]
